FAERS Safety Report 5252843-2 (Version None)
Quarter: 2007Q1

REPORT INFORMATION
  Report Type: 
  Country: None (occurrence: None)
  Receive Date: 20070227
  Receipt Date: 20070214
  Transmission Date: 20070707
  Serious: Yes (Hospitalization)
  Sender: FDA-Public Use
  Company Number: GXKR2007GB01438

PATIENT
  Age: 54 Year
  Sex: Male

DRUGS (3)
  1. RAMIPRIL [Suspect]
     Dosage: 300 MG, UNK, ORAL
     Route: 048
  2. RANITIDINE [Suspect]
     Dosage: 4500 MG, UNK, ORAL
     Route: 048
  3. SIMVASTATIN [Suspect]
     Dosage: 600 MG, UNK, ORAL
     Route: 048

REACTIONS (3)
  - FALL [None]
  - HYPOTENSION [None]
  - OVERDOSE [None]
